FAERS Safety Report 9263175 (Version 1)
Quarter: 2013Q1

REPORT INFORMATION
  Report Type: Spontaneous
  Country: US (occurrence: None)
  Receive Date: 20121212
  Receipt Date: 20121212
  Transmission Date: 20140127
  Serious: No
  Sender: FDA-Public Use
  Company Number: 1210USA013367

PATIENT
  Age: 63 Year
  Sex: Female

DRUGS (11)
  1. VICTRELIS [Suspect]
     Route: 048
  2. ORABASE (CARBOXYMETHYLCELLULOSE SODIUM, GELATIN, PECTIN) [Concomitant]
  3. PROCRIT [Concomitant]
  4. METFORMIN (METFORMIN) [Concomitant]
  5. AMLODIPINE (AMLODIPINE) [Concomitant]
  6. HYDROCHLOROT (HYDROCHLOROTHIAZIDE) [Concomitant]
  7. LEVOTHYROXINE SODIUM (LEVOTHYROXINE SODIUM) [Concomitant]
  8. NADOLOL (NADOLOL) [Concomitant]
  9. CALCIUM (UNSPECIFIED) (CALCIUM UNSPECIFIED) [Concomitant]
  10. BACTRIM [Concomitant]
  11. NEUPOGEN (FILGRASTIM) [Concomitant]

REACTIONS (1)
  - White blood cell count decreased [None]
